FAERS Safety Report 17445042 (Version 1)
Quarter: 2020Q1

REPORT INFORMATION
  Report Type: Spontaneous
  Country: CN (occurrence: CN)
  Receive Date: 20200221
  Receipt Date: 20200221
  Transmission Date: 20200409
  Serious: Yes (Other)
  Sender: FDA-Public Use
  Company Number: CN-BAXTER-2020BAX003640

PATIENT
  Age: 34 Year
  Sex: Female
  Weight: 54 kg

DRUGS (6)
  1. 0.9% SODIUM CHLORIDE INJECTION [Suspect]
     Active Substance: SODIUM CHLORIDE
     Indication: MEDICATION DILUTION
     Dosage: FIRST CHEMOTHERAPY, ENDOXAN POWDER FOR INJECTION 750 MG + NS INJECTION
     Route: 042
     Dates: start: 20191210, end: 20191210
  2. TAISUODI [DOCETAXEL] [Suspect]
     Active Substance: DOCETAXEL
     Indication: BREAST CANCER FEMALE
     Dosage: FIRST CHEMOTHERAPY, TAISUODI INJECTION + NS 250 ML
     Route: 041
     Dates: start: 20191210, end: 20191210
  3. 0.9% SODIUM CHLORIDE INJECTION [Suspect]
     Active Substance: SODIUM CHLORIDE
     Dosage: FIRST CHEMOTHERAPY, TAISUODI INJECTION 105 MG + NS
     Route: 041
     Dates: start: 20191210, end: 20191210
  4. FAMAXIN (EPIRUBICIN HYDROCHLORIDE) [Suspect]
     Active Substance: EPIRUBICIN HYDROCHLORIDE
     Indication: BREAST CANCER FEMALE
     Dosage: FIRST CHEMOTHERAPY, FAMAXIN POWDER FOR INJECTION + NS 100 ML
     Route: 041
     Dates: start: 20191210, end: 20191210
  5. 0.9% SODIUM CHLORIDE INJECTION [Suspect]
     Active Substance: SODIUM CHLORIDE
     Dosage: FIRST CHEMOTHERAPY, FAMAXIN POWDER FOR INJECTION 105 MG + NS
     Route: 041
     Dates: start: 20191210, end: 20191210
  6. ENDOXAN [Suspect]
     Active Substance: CYCLOPHOSPHAMIDE
     Indication: BREAST CANCER FEMALE
     Dosage: FIRST CHEMOTHERAPY, ENDOXAN POWDER FOR INJECTION + NS INJECTION 35 ML
     Route: 042
     Dates: start: 20191210, end: 20191210

REACTIONS (2)
  - White blood cell count decreased [Recovering/Resolving]
  - Agranulocytosis [Recovering/Resolving]

NARRATIVE: CASE EVENT DATE: 20191215
